FAERS Safety Report 18573841 (Version 1)
Quarter: 2020Q4

REPORT INFORMATION
  Report Type: Spontaneous
  Country: US (occurrence: US)
  Receive Date: 20201005
  Receipt Date: 20201005
  Transmission Date: 20210114
  Serious: Yes (Death)
  Sender: FDA-Public Use
  Company Number: None

PATIENT
  Age: 9 Decade
  Sex: Female

DRUGS (1)
  1. IMMUNOGLOBULINS, INTRAVENOUS [Suspect]
     Active Substance: HUMAN IMMUNOGLOBULIN G
     Indication: COVID-19
     Dosage: ?          OTHER DOSE:.04MG/KG;?
     Route: 042
     Dates: start: 2020

REACTIONS (4)
  - Thrombocytopenia [None]
  - Oxygen therapy [None]
  - General physical health deterioration [None]
  - Off label use [None]
